FAERS Safety Report 16182257 (Version 1)
Quarter: 2019Q2

REPORT INFORMATION
  Report Type: Spontaneous
  Country: US (occurrence: US)
  Receive Date: 20190411
  Receipt Date: 20190411
  Transmission Date: 20190711
  Serious: Yes (Other)
  Sender: FDA-Public Use
  Company Number: US-GLAXOSMITHKLINE-US2019061829

PATIENT
  Age: 70 Year
  Sex: Male

DRUGS (1)
  1. LAMICTAL [Suspect]
     Active Substance: LAMOTRIGINE
     Indication: EPILEPSY
     Dosage: 300 MG, BID (100 MG, 6 TABLETS IN A  DAY/150MG, 3 TABLET A DAY)
     Route: 065
     Dates: start: 2006

REACTIONS (3)
  - Excessive eye blinking [Unknown]
  - Seizure [Unknown]
  - Drug level fluctuating [Unknown]

NARRATIVE: CASE EVENT DATE: 20190304
